FAERS Safety Report 8862270 (Version 1)
Quarter: 2012Q4

REPORT INFORMATION
  Report Type: Report from Study
  Country: CL (occurrence: CL)
  Receive Date: 20121026
  Receipt Date: 20121026
  Transmission Date: 20130627
  Serious: Yes (Other)
  Sender: FDA-Public Use
  Company Number: CL-ROCHE-1148847

PATIENT
  Age: 78 Year
  Sex: Female
  Weight: 45 kg

DRUGS (4)
  1. METHOXY POLYETHYLENE GLYCOL-EPOETIN BETA [Suspect]
     Indication: ANAEMIA
     Route: 058
     Dates: start: 20100712
  2. METHOXY POLYETHYLENE GLYCOL-EPOETIN BETA [Suspect]
     Route: 058
  3. ENALAPRIL [Concomitant]
     Indication: HYPERTENSION
     Route: 048
  4. FERROUS SULFATE [Concomitant]

REACTIONS (1)
  - Cerebrovascular accident [Not Recovered/Not Resolved]
